FAERS Safety Report 6975110-5 (Version None)
Quarter: 2010Q3

REPORT INFORMATION
  Report Type: 
  Country: None (occurrence: None)
  Receive Date: 20100910
  Receipt Date: 20090224
  Transmission Date: 20110219
  Serious: Yes (Hospitalization)
  Sender: FDA-Public Use
  Company Number: US-WYE-H08138309

PATIENT
  Sex: Male
  Weight: 106.69 kg

DRUGS (7)
  1. TORISEL [Suspect]
     Indication: RENAL CELL CARCINOMA
     Dosage: 25MG AT UNKNOWN FREQUENCY FOR SIX WEEKS
     Route: 042
     Dates: start: 20090103, end: 20090218
  2. ZOFRAN [Concomitant]
     Indication: NAUSEA
     Dosage: 8MG EVERY EIGHT HOURS AS NEEDED
     Route: 048
     Dates: start: 20090101
  3. ZOFRAN [Concomitant]
     Indication: VOMITING
  4. COMPAZINE [Concomitant]
     Indication: NAUSEA
     Dosage: 10MG EVERY EIGHT HOURS AS NEEDED
     Dates: start: 20090101
  5. COMPAZINE [Concomitant]
     Indication: VOMITING
  6. LISINOPRIL [Concomitant]
     Indication: HYPERTENSION
     Route: 048
     Dates: start: 20080101
  7. PRAVASTATIN [Concomitant]
     Indication: BLOOD CHOLESTEROL INCREASED
     Route: 048
     Dates: start: 20090101

REACTIONS (1)
  - RASH PUSTULAR [None]
